FAERS Safety Report 21470751 (Version 1)
Quarter: 2022Q4

REPORT INFORMATION
  Report Type: Spontaneous
  Country: JP (occurrence: JP)
  Receive Date: 20221018
  Receipt Date: 20221018
  Transmission Date: 20230113
  Serious: Yes (Other)
  Sender: FDA-Public Use
  Company Number: JP-SUN PHARMACEUTICAL INDUSTRIES LTD-2022RR-359036

PATIENT
  Age: 61 Year
  Sex: Female

DRUGS (5)
  1. OLANZAPINE [Suspect]
     Active Substance: OLANZAPINE
     Indication: Schizophrenia
     Dosage: 5 MILLIGRAM, DAILY
     Route: 065
  2. PALIPERIDONE [Suspect]
     Active Substance: PALIPERIDONE
     Indication: Schizophrenia
     Dosage: 6 MILLIGRAM, DAILY, FOR 2 WEEKS
     Route: 065
  3. ARIPIPRAZOLE [Suspect]
     Active Substance: ARIPIPRAZOLE
     Indication: Schizophrenia
     Dosage: 12 MILLIGRAM, DAILY, FOR 2 WEEKS
     Route: 065
  4. BREXPIPRAZOLE [Suspect]
     Active Substance: BREXPIPRAZOLE
     Indication: Schizophrenia
     Dosage: 2 MILLIGRAM, DAILY
     Route: 065
  5. BLONANSERIN [Concomitant]
     Active Substance: BLONANSERIN
     Indication: Product used for unknown indication
     Dosage: 6-8 MG/D
     Route: 065

REACTIONS (10)
  - Dyskinesia [Recovering/Resolving]
  - Hyperglycaemia [Unknown]
  - Psychiatric symptom [Recovering/Resolving]
  - Gait disturbance [Recovering/Resolving]
  - Bradykinesia [Recovering/Resolving]
  - Muscle rigidity [Recovering/Resolving]
  - Tremor [Recovering/Resolving]
  - Dyskinesia [Recovering/Resolving]
  - Drug intolerance [Unknown]
  - Drug ineffective [Unknown]
